FAERS Safety Report 21651571 (Version 2)
Quarter: 2022Q4

REPORT INFORMATION
  Report Type: Spontaneous
  Country: ES (occurrence: ES)
  Receive Date: 20221128
  Receipt Date: 20221205
  Transmission Date: 20230113
  Serious: Yes (Death, Other)
  Sender: FDA-Public Use
  Company Number: None

PATIENT
  Age: 65 Year
  Sex: Female
  Weight: 55 kg

DRUGS (2)
  1. DEXMEDETOMIDINE HYDROCHLORIDE [Suspect]
     Active Substance: DEXMEDETOMIDINE HYDROCHLORIDE
     Indication: Sedation
     Dosage: 100 MICROGRAMS PER MILLILITER CONCENTRATED FOR SOLUTION FOR ?? INFUSION (25X2ML), 25 AMPOULES OF 2ML
     Route: 065
     Dates: start: 20221020, end: 20221021
  2. AMIODARONE [Suspect]
     Active Substance: AMIODARONE
     Indication: Atrial fibrillation
     Dosage: 37.5 MILLIGRAM, QH
     Route: 065
     Dates: start: 20221020

REACTIONS (2)
  - Ventricular asystole [Fatal]
  - Drug interaction [Unknown]

NARRATIVE: CASE EVENT DATE: 20221001
